FAERS Safety Report 6588914-8 (Version None)
Quarter: 2010Q1

REPORT INFORMATION
  Report Type: 
  Country: None (occurrence: None)
  Receive Date: 20100202
  Receipt Date: 20090910
  Transmission Date: 20100710
  Serious: No
  Sender: FDA-Public Use
  Company Number: 2009-00593

PATIENT
  Age: 59 Year
  Sex: Male
  Weight: 86.1834 kg

DRUGS (1)
  1. ZICAM COLD REMEDY GEL SWABS [Suspect]
     Dosage: QID, SPORADIC USE, YEARS AGO
     Dates: end: 20090501

REACTIONS (1)
  - ANOSMIA [None]
